FAERS Safety Report 4684754-5 (Version None)
Quarter: 2005Q2

REPORT INFORMATION
  Report Type: 
  Country: None (occurrence: None)
  Receive Date: 20050603
  Receipt Date: 20050524
  Transmission Date: 20051028
  Serious: Yes (Life-Threatening)
  Sender: FDA-Public Use
  Company Number: 2005073360

PATIENT
  Age: 28 Year
  Sex: Female
  Weight: 63 kg

DRUGS (14)
  1. SOLU-MEDROL [Suspect]
     Indication: ILL-DEFINED DISORDER
     Dosage: 80 MG (40 MG, 2 IN 1 D), INTRAVENOUS
     Route: 042
     Dates: start: 20040904, end: 20040909
  2. VIDEX [Concomitant]
  3. NORVIR [Concomitant]
  4. VIREAD [Concomitant]
  5. REYATAZ [Concomitant]
  6. EMTRICITABINE (EMTRICITABINE) [Concomitant]
  7. CLARITHROMYCIN [Concomitant]
  8. ETHAMBUTOL (ETHAMBUTOL) [Concomitant]
  9. CIPROFLOXACIN HCL [Concomitant]
  10. MOXIFLOXACIN (MOXIFLOXACIN) [Concomitant]
  11. RIFABUTIN (RIFABUTIN) [Concomitant]
  12. AMIKLIN (AMIKACIN) [Concomitant]
  13. CORTANCYL (PREDNISONE) [Concomitant]
  14. BACTRIM DS [Concomitant]

REACTIONS (1)
  - DIABETES MELLITUS [None]
